FAERS Safety Report 7404417-2 (Version None)
Quarter: 2011Q2

REPORT INFORMATION
  Report Type: 
  Country: None (occurrence: None)
  Receive Date: 20110408
  Receipt Date: 20110224
  Transmission Date: 20111010
  Serious: Yes (Other)
  Sender: FDA-Public Use
  Company Number: IN-GENENTECH-316410

PATIENT
  Age: 68 Year
  Sex: Male

DRUGS (4)
  1. LUCENTIS [Suspect]
     Dosage: 0.5 MG, UNKNOWN
     Route: 031
  2. LUCENTIS [Suspect]
     Dosage: 0.5 MG, UNKNOWN
     Route: 031
  3. VERTEPORFIN [Suspect]
     Indication: MACULAR DEGENERATION
  4. LUCENTIS [Suspect]
     Indication: MACULAR DEGENERATION
     Dosage: 0.5 MG, UNKNOWN
     Route: 031

REACTIONS (2)
  - MACULAR HOLE [None]
  - RETINAL DISORDER [None]
